FAERS Safety Report 6877183-7 (Version None)
Quarter: 2010Q3

REPORT INFORMATION
  Report Type: 
  Country: None (occurrence: None)
  Receive Date: 20100727
  Receipt Date: 20100727
  Transmission Date: 20110219
  Serious: Yes (Life-Threatening, Hospitalization)
  Sender: FDA-Public Use
  Company Number: None

PATIENT
  Age: 28 Year
  Sex: Female
  Weight: 63 kg

DRUGS (5)
  1. TYLENOL-500 [Suspect]
  2. ONDANSETRON [Concomitant]
  3. ALBUTEROL [Concomitant]
  4. DEXTROSE [Concomitant]
  5. NACL WITH KCL [Concomitant]

REACTIONS (4)
  - DYSPNOEA [None]
  - INCORRECT DOSE ADMINISTERED [None]
  - MEDICATION ERROR [None]
  - VOMITING [None]
